FAERS Safety Report 4413059-2 (Version None)
Quarter: 2004Q3

REPORT INFORMATION
  Report Type: 
  Country: None (occurrence: None)
  Receive Date: 20040802
  Receipt Date: 20040802
  Transmission Date: 20050211
  Serious: No
  Sender: FDA-Public Use
  Company Number: None

PATIENT
  Age: 68 Year
  Sex: Male
  Weight: 97.977 kg

DRUGS (4)
  1. BEANO 150-GALU [Suspect]
     Indication: ABDOMINAL DISCOMFORT
     Dosage: AS DIRECT ORAL BUCCAL
     Route: 002
     Dates: start: 20040726, end: 20040726
  2. BEANO 150-GALU [Suspect]
     Indication: ABDOMINAL DISTENSION
     Dosage: AS DIRECT ORAL BUCCAL
     Route: 002
     Dates: start: 20040726, end: 20040726
  3. BEANO 150-GALU [Suspect]
     Indication: FLATULENCE
     Dosage: AS DIRECT ORAL BUCCAL
     Route: 002
     Dates: start: 20040726, end: 20040726
  4. LISPRO [Concomitant]

REACTIONS (1)
  - BLOOD GLUCOSE INCREASED [None]
